FAERS Safety Report 11094014 (Version 1)
Quarter: 2015Q2

REPORT INFORMATION
  Report Type: Spontaneous
  Country: PL (occurrence: PL)
  Receive Date: 20150506
  Receipt Date: 20150506
  Transmission Date: 20150821
  Serious: Yes (Death, Other)
  Sender: FDA-Public Use
  Company Number: PL-CELGENE-POL-2015045924

PATIENT

DRUGS (1)
  1. AZACITIDINE INJECTABLE [Suspect]
     Active Substance: AZACITIDINE
     Indication: ACUTE MYELOID LEUKAEMIA
     Route: 065

REACTIONS (5)
  - Full blood count decreased [Unknown]
  - Death [Fatal]
  - Acute myeloid leukaemia [Unknown]
  - Bone marrow failure [Unknown]
  - Acute myeloid leukaemia recurrent [Unknown]
